FAERS Safety Report 9060917 (Version 2)
Quarter: 2013Q4

REPORT INFORMATION
  Report Type: Spontaneous
  Country: IT (occurrence: IT)
  Receive Date: 20130212
  Receipt Date: 20131227
  Transmission Date: 20140711
  Serious: Yes (Hospitalization)
  Sender: FDA-Public Use
  Company Number: IT-MYLANLABS-2013S1002558

PATIENT
  Age: 56 Year
  Sex: Female

DRUGS (6)
  1. VENLAFAXINE [Suspect]
     Route: 048
     Dates: start: 20120805, end: 20120805
  2. PARACETAMOL [Suspect]
     Route: 048
     Dates: start: 20120805, end: 20120805
  3. LEXOTAN [Suspect]
     Route: 048
     Dates: start: 20120805, end: 20120805
  4. CIPRALEX [Suspect]
     Route: 048
     Dates: start: 20120805, end: 20120805
  5. PATROL [Suspect]
     Route: 048
     Dates: start: 20120805, end: 20120805
  6. MOMENT [Suspect]
     Route: 048
     Dates: start: 20120805, end: 20120805

REACTIONS (5)
  - Respiratory acidosis [Recovering/Resolving]
  - Respiratory depression [Recovering/Resolving]
  - Sopor [Recovering/Resolving]
  - Depression [Recovering/Resolving]
  - Intentional overdose [Recovering/Resolving]
